FAERS Safety Report 10562400 (Version 2)
Quarter: 2015Q2

REPORT INFORMATION
  Report Type: Report from Study
  Country: BR (occurrence: BR)
  Receive Date: 20141104
  Receipt Date: 20150417
  Transmission Date: 20150821
  Serious: Yes (Other)
  Sender: FDA-Public Use
  Company Number: PHHY2014BR143093

PATIENT
  Age: 11 Year
  Sex: Male
  Weight: 31 kg

DRUGS (2)
  1. EXJADE [Suspect]
     Active Substance: DEFERASIROX
     Dosage: 1 DF, QD (AT 12.30 PM)
     Route: 065
     Dates: start: 201403
  2. EXJADE [Suspect]
     Active Substance: DEFERASIROX
     Indication: SERUM FERRITIN INCREASED
     Dosage: 1 DF, QD (AT 12.30 PM)
     Route: 065
     Dates: start: 2013, end: 201401

REACTIONS (7)
  - Musculoskeletal chest pain [Recovering/Resolving]
  - Hypersensitivity [Recovering/Resolving]
  - Blister [Unknown]
  - Wrong technique in drug usage process [Not Recovered/Not Resolved]
  - Chest pain [Unknown]
  - Rash papular [Recovering/Resolving]
  - Headache [Not Recovered/Not Resolved]

NARRATIVE: CASE EVENT DATE: 201312
